FAERS Safety Report 9726524 (Version 1)
Quarter: 2013Q4

REPORT INFORMATION
  Report Type: Spontaneous
  Country: SE (occurrence: SE)
  Receive Date: 20131203
  Receipt Date: 20131203
  Transmission Date: 20140711
  Serious: Yes (Other)
  Sender: FDA-Public Use
  Company Number: SE-BAYER-2013-142299

PATIENT
  Age: 41 Year
  Sex: Female
  Weight: 70 kg

DRUGS (1)
  1. MIRENA [Suspect]
     Dosage: 20 MCG/24HR, CONT
     Route: 015
     Dates: start: 20131101, end: 20131102

REACTIONS (3)
  - Panic attack [Recovered/Resolved with Sequelae]
  - Emotional disorder [Recovered/Resolved with Sequelae]
  - Nausea [Recovered/Resolved with Sequelae]
